FAERS Safety Report 8104990-5 (Version None)
Quarter: 2012Q1

REPORT INFORMATION
  Report Type: 
  Country: None (occurrence: None)
  Receive Date: 20120201
  Receipt Date: 20120123
  Transmission Date: 20120608
  Serious: Yes (Hospitalization)
  Sender: FDA-Public Use
  Company Number: JP-GLAXOSMITHKLINE-B0719419A

PATIENT
  Age: 64 Year
  Sex: Male

DRUGS (1)
  1. VALTREX [Suspect]
     Indication: HERPES ZOSTER
     Dosage: 1500MG PER DAY
     Route: 048
     Dates: start: 20110506, end: 20110507

REACTIONS (8)
  - DISORIENTATION [None]
  - NERVOUS SYSTEM DISORDER [None]
  - DELIRIUM [None]
  - HALLUCINATION [None]
  - DYSARTHRIA [None]
  - GAIT DISTURBANCE [None]
  - DYSLALIA [None]
  - DIZZINESS [None]
